FAERS Safety Report 13279821 (Version 1)
Quarter: 2017Q1

REPORT INFORMATION
  Report Type: Spontaneous
  Country: US (occurrence: US)
  Receive Date: 20170228
  Receipt Date: 20170228
  Transmission Date: 20170428
  Serious: Yes (Disabling)
  Sender: FDA-Public Use
  Company Number: None

PATIENT
  Age: 7 Year
  Sex: Female
  Weight: 28.35 kg

DRUGS (5)
  1. GUAFACINE [Concomitant]
  2. CEPROHEPTADINE [Concomitant]
  3. POLYETHYLENE GLYCOL 3350. [Suspect]
     Active Substance: POLYETHYLENE GLYCOL 3350
     Indication: CONSTIPATION
     Dosage: .5 CAPFUL ORAL TWICE A DAY
     Route: 048
     Dates: start: 20160605, end: 20170228
  4. CLONEDINE [Concomitant]
  5. LEXAPRO [Concomitant]
     Active Substance: ESCITALOPRAM OXALATE

REACTIONS (4)
  - Anger [None]
  - Anxiety [None]
  - Depression [None]
  - Abdominal pain upper [None]

NARRATIVE: CASE EVENT DATE: 20160606
